FAERS Safety Report 21521677 (Version 1)
Quarter: 2022Q4

REPORT INFORMATION
  Report Type: Spontaneous
  Country: US (occurrence: US)
  Receive Date: 20221028
  Receipt Date: 20221028
  Transmission Date: 20230112
  Serious: Yes (Other)
  Sender: FDA-Public Use
  Company Number: US-SA-SAC20221027000292

PATIENT
  Age: 78 Year
  Sex: Male
  Weight: 90.7 kg

DRUGS (16)
  1. DUPIXENT [Suspect]
     Active Substance: DUPILUMAB
     Indication: Dermatitis atopic
     Dosage: 300 MG, QOW
     Route: 058
  2. FLUARIX NOS [Concomitant]
     Active Substance: INFLUENZA VIRUS VACCINE
  3. KETOCONAZOLE [Concomitant]
     Active Substance: KETOCONAZOLE
  4. ZEASORB AF [Concomitant]
     Active Substance: MICONAZOLE NITRATE
  5. VITAMIN C [Concomitant]
     Active Substance: ASCORBIC ACID
  6. MIRALAX [Concomitant]
     Active Substance: POLYETHYLENE GLYCOL 3350
  7. BENEFIBER [WHEAT DEXTRIN] [Concomitant]
  8. VITAMIN B12 [Concomitant]
     Active Substance: CYANOCOBALAMIN
  9. CELEBREX [Concomitant]
     Active Substance: CELECOXIB
  10. FINASTERIDE [Concomitant]
     Active Substance: FINASTERIDE
  11. ZYRTEC [Concomitant]
     Active Substance: CETIRIZINE HYDROCHLORIDE
  12. ALLEGRA ALLERGY [Concomitant]
     Active Substance: FEXOFENADINE HYDROCHLORIDE
  13. FIORICET [Concomitant]
     Active Substance: ACETAMINOPHEN\BUTALBITAL\CAFFEINE
  14. LIPITOR [Concomitant]
     Active Substance: ATORVASTATIN CALCIUM
  15. WARFARIN SODIUM [Concomitant]
     Active Substance: WARFARIN SODIUM
  16. BALNEOL [Concomitant]

REACTIONS (3)
  - Loss of consciousness [Unknown]
  - Hyperhidrosis [Unknown]
  - Pruritus [Unknown]

NARRATIVE: CASE EVENT DATE: 20221005
